FAERS Safety Report 6792147-X (Version None)
Quarter: 2010Q2

REPORT INFORMATION
  Report Type: 
  Country: None (occurrence: None)
  Receive Date: 20100624
  Receipt Date: 20080829
  Transmission Date: 20101027
  Serious: Yes (Hospitalization, Other)
  Sender: FDA-Public Use
  Company Number: US-PFIZER INC-2008059881

PATIENT
  Age: 61 Year
  Sex: Male

DRUGS (2)
  1. SUTENT [Suspect]
     Indication: RENAL CELL CARCINOMA
     Dosage: QD: 4 WEEKS ON 2 WEEKS OFF
     Route: 048
     Dates: start: 20071221, end: 20080218
  2. SUTENT [Suspect]
     Indication: METASTASES TO LUNG

REACTIONS (1)
  - RENAL FAILURE ACUTE [None]
